FAERS Safety Report 7081019-1 (Version None)
Quarter: 2010Q4

REPORT INFORMATION
  Report Type: 
  Country: None (occurrence: None)
  Receive Date: 20101103
  Receipt Date: 20101025
  Transmission Date: 20110411
  Serious: Yes (Life-Threatening, Hospitalization, Other)
  Sender: FDA-Public Use
  Company Number: CA-CELGENEUS-028-21880-10080123

PATIENT
  Sex: Male

DRUGS (4)
  1. REVLIMID [Suspect]
     Indication: MULTIPLE MYELOMA
     Route: 048
     Dates: start: 20100708, end: 20100827
  2. DIOVAN [Concomitant]
     Route: 065
  3. FLOMAX [Concomitant]
     Route: 065
  4. INSULIN [Concomitant]
     Route: 065

REACTIONS (2)
  - ORGANISING PNEUMONIA [None]
  - PANCYTOPENIA [None]
